FAERS Safety Report 14122513 (Version 1)
Quarter: 2017Q4

REPORT INFORMATION
  Report Type: Spontaneous
  Country: US (occurrence: None)
  Receive Date: 20171024
  Receipt Date: 20171024
  Transmission Date: 20180321
  Serious: No
  Sender: FDA-Public Use
  Company Number: None

PATIENT
  Age: 41 Year
  Sex: Female
  Weight: 73.94 kg

DRUGS (5)
  1. XANAX [Concomitant]
     Active Substance: ALPRAZOLAM
  2. ESSENTIAL OILS. [Concomitant]
     Active Substance: ESSENTIAL OILS
  3. AZITHROMYCIN ANHYDROUS. [Suspect]
     Active Substance: AZITHROMYCIN ANHYDROUS
     Indication: RESPIRATORY TRACT CONGESTION
     Dosage: 500 MG DAY 2 PILLS DAY 1  LUNCH BY MOUTH
     Route: 048
     Dates: start: 20170928, end: 20170928
  4. ZOLPIDEM [Concomitant]
     Active Substance: ZOLPIDEM\ZOLPIDEM TARTRATE
  5. AZITHROMYCIN ANHYDROUS. [Suspect]
     Active Substance: AZITHROMYCIN ANHYDROUS
     Indication: BRONCHITIS
     Dosage: 500 MG DAY 2 PILLS DAY 1  LUNCH BY MOUTH
     Route: 048
     Dates: start: 20170928, end: 20170928

REACTIONS (4)
  - Diarrhoea [None]
  - Drug hypersensitivity [None]
  - Rash [None]
  - Burning mouth syndrome [None]

NARRATIVE: CASE EVENT DATE: 20170928
